FAERS Safety Report 20215283 (Version 4)
Quarter: 2023Q4

REPORT INFORMATION
  Report Type: Spontaneous
  Country: GB (occurrence: GB)
  Receive Date: 20211222
  Receipt Date: 20231127
  Transmission Date: 20240110
  Serious: Yes (Other)
  Sender: FDA-Public Use
  Company Number: GB-TEVA-2018-GB-890012

PATIENT
  Age: 86 Year
  Sex: Male

DRUGS (6)
  1. DOXAZOSIN [Suspect]
     Active Substance: DOXAZOSIN MESYLATE
     Indication: Product used for unknown indication
     Dosage: 2 MILLIGRAM (2 MG, UNK)
     Route: 065
  2. DOXAZOSIN [Suspect]
     Active Substance: DOXAZOSIN MESYLATE
     Dosage: 1 MILLIGRAM, UNK
     Route: 065
     Dates: start: 20160312, end: 201609
  3. DOXAZOSIN [Suspect]
     Active Substance: DOXAZOSIN MESYLATE
     Dosage: 4 MILLIGRAM, UNK
     Route: 065
     Dates: start: 20160510
  4. DOXAZOSIN [Suspect]
     Active Substance: DOXAZOSIN MESYLATE
     Dosage: 4 MILLIGRAM
     Route: 065
     Dates: start: 201603, end: 201609
  5. DOXAZOSIN [Suspect]
     Active Substance: DOXAZOSIN MESYLATE
     Indication: Product used for unknown indication
     Dosage: 3 MILLIGRAM, UNK
     Route: 065
  6. RAMIPRIL [Concomitant]
     Active Substance: RAMIPRIL
     Indication: Product used for unknown indication
     Dosage: UNK
     Route: 065

REACTIONS (8)
  - Visual impairment [Not Recovered/Not Resolved]
  - Headache [Unknown]
  - Heart rate decreased [Unknown]
  - Vision blurred [Not Recovered/Not Resolved]
  - Balance disorder [Unknown]
  - Loss of personal independence in daily activities [Unknown]
  - Confusional state [Not Recovered/Not Resolved]
  - Blindness [Unknown]
